FAERS Safety Report 20752759 (Version 1)
Quarter: 2022Q2

REPORT INFORMATION
  Report Type: Spontaneous
  Country: US (occurrence: None)
  Receive Date: 20220426
  Receipt Date: 20220426
  Transmission Date: 20220721
  Serious: No
  Sender: FDA-Public Use
  Company Number: US-ROCHE-2875793

PATIENT
  Age: 82 Year
  Sex: Female

DRUGS (21)
  1. ESBRIET [Suspect]
     Active Substance: PIRFENIDONE
     Indication: Idiopathic pulmonary fibrosis
     Dosage: 2 267MG TABLETS TID
     Route: 048
  2. ESBRIET [Suspect]
     Active Substance: PIRFENIDONE
     Indication: Pulmonary fibrosis
     Route: 048
     Dates: start: 20210713, end: 202108
  3. COLACE [Concomitant]
     Active Substance: DOCUSATE SODIUM
     Route: 048
  4. MIRALAX [Concomitant]
     Active Substance: POLYETHYLENE GLYCOL 3350
     Route: 048
  5. SYNTHROID [Concomitant]
     Active Substance: LEVOTHYROXINE SODIUM
     Route: 048
  6. TYLENOL [Concomitant]
     Active Substance: ACETAMINOPHEN
     Route: 048
  7. ASPIRIN [Concomitant]
     Active Substance: ASPIRIN
     Route: 048
  8. CELECOXIB [Concomitant]
     Active Substance: CELECOXIB
     Route: 048
  9. FUROSEMIDE [Concomitant]
     Active Substance: FUROSEMIDE
     Route: 048
  10. GABAPENTIN [Concomitant]
     Active Substance: GABAPENTIN
     Route: 048
  11. MONTELUKAST [Concomitant]
     Active Substance: MONTELUKAST SODIUM
     Route: 048
  12. NIACIN [Concomitant]
     Active Substance: NIACIN
     Route: 048
  13. OXYCODONE [Concomitant]
     Active Substance: OXYCODONE
     Route: 048
  14. RANITIDINE [Concomitant]
     Active Substance: RANITIDINE
     Route: 048
  15. BENADRYL [Concomitant]
     Active Substance: DIPHENHYDRAMINE HYDROCHLORIDE
     Route: 048
  16. ELIQUIS [Concomitant]
     Active Substance: APIXABAN
     Route: 048
  17. PREDNISONE [Concomitant]
     Active Substance: PREDNISONE
     Route: 048
  18. AZELASTINE [Concomitant]
     Active Substance: AZELASTINE
     Route: 045
  19. CETIRIZINE HYDROCHLORIDE [Concomitant]
     Active Substance: CETIRIZINE HYDROCHLORIDE
  20. SINGULAIR [Concomitant]
     Active Substance: MONTELUKAST SODIUM
  21. FLONASE [Concomitant]
     Active Substance: FLUTICASONE PROPIONATE

REACTIONS (7)
  - Insomnia [Not Recovered/Not Resolved]
  - Fatigue [Not Recovered/Not Resolved]
  - Nausea [Not Recovered/Not Resolved]
  - Abdominal pain upper [Not Recovered/Not Resolved]
  - Diarrhoea [Not Recovered/Not Resolved]
  - Feeling abnormal [Not Recovered/Not Resolved]
  - Vomiting [Not Recovered/Not Resolved]

NARRATIVE: CASE EVENT DATE: 20210719
